FAERS Safety Report 7710297-8 (Version None)
Quarter: 2011Q3

REPORT INFORMATION
  Report Type: 
  Country: None (occurrence: None)
  Receive Date: 20110825
  Receipt Date: 20110819
  Transmission Date: 20111222
  Serious: No
  Sender: FDA-Public Use
  Company Number: US-TEVA-294456USA

PATIENT
  Sex: Female

DRUGS (3)
  1. COPAXONE [Suspect]
     Indication: MULTIPLE SCLEROSIS
     Route: 058
  2. ATORVASTATIN CALCIUM [Concomitant]
  3. RISEDRONATE SODIUM [Concomitant]

REACTIONS (4)
  - FLUSHING [None]
  - CHEST DISCOMFORT [None]
  - CHILLS [None]
  - SWELLING FACE [None]
